FAERS Safety Report 16279363 (Version 3)
Quarter: 2020Q3

REPORT INFORMATION
  Report Type: Report from Study
  Country: BR (occurrence: BR)
  Receive Date: 20190507
  Receipt Date: 20190605
  Transmission Date: 20201105
  Serious: Yes (Death, Other)
  Sender: FDA-Public Use
  Company Number: BR-ROCHE-2305987

PATIENT
  Sex: Male

DRUGS (14)
  1. MABTHERA [Suspect]
     Active Substance: RITUXIMAB
     Route: 065
     Dates: start: 20181212, end: 20190108
  2. DOXORUBICIN [Suspect]
     Active Substance: DOXORUBICIN
     Indication: B-CELL LYMPHOMA
     Dosage: 8 CYCLES
     Route: 065
     Dates: start: 201711, end: 20180411
  3. VINCRISTINE [Suspect]
     Active Substance: VINCRISTINE
     Indication: B-CELL LYMPHOMA
     Dosage: 8 CYCLES
     Route: 065
     Dates: start: 201711, end: 20180411
  4. CYCLOPHOSPHAMIDE. [Suspect]
     Active Substance: CYCLOPHOSPHAMIDE
     Indication: B-CELL LYMPHOMA
     Dosage: 8 CYCLES
     Route: 065
     Dates: start: 201711, end: 20180411
  5. PREDNISONE. [Suspect]
     Active Substance: PREDNISONE
     Indication: B-CELL LYMPHOMA
     Dosage: 8 CYCLES
     Route: 065
     Dates: start: 201711, end: 20180411
  6. MABTHERA [Suspect]
     Active Substance: RITUXIMAB
     Route: 065
     Dates: start: 20190409
  7. GEMCITABINE. [Suspect]
     Active Substance: GEMCITABINE
     Route: 065
     Dates: start: 20181212, end: 20190108
  8. MABTHERA [Suspect]
     Active Substance: RITUXIMAB
     Indication: B-CELL LYMPHOMA
     Dosage: 6 CYCLES
     Route: 065
     Dates: end: 20180411
  9. GEMCITABINE. [Suspect]
     Active Substance: GEMCITABINE
     Indication: B-CELL LYMPHOMA
     Dosage: 1 CYCLE
     Route: 065
     Dates: start: 20181107
  10. CISPLATIN. [Suspect]
     Active Substance: CISPLATIN
     Indication: B-CELL LYMPHOMA
     Dosage: 1 CYCLE
     Route: 065
     Dates: start: 20181107
  11. POLATUZUMAB VEDOTIN. [Suspect]
     Active Substance: POLATUZUMAB VEDOTIN
     Indication: B-CELL LYMPHOMA
     Route: 065
     Dates: start: 20190409
  12. MABTHERA [Suspect]
     Active Substance: RITUXIMAB
     Route: 065
     Dates: start: 20181107
  13. OXALIPLATIN. [Suspect]
     Active Substance: OXALIPLATIN
     Indication: B-CELL LYMPHOMA
     Route: 065
     Dates: start: 20181212, end: 20190108
  14. DEXAMETHASONE. [Suspect]
     Active Substance: DEXAMETHASONE
     Indication: B-CELL LYMPHOMA
     Dosage: 1 CYCLE
     Route: 065
     Dates: start: 20181107

REACTIONS (4)
  - Febrile neutropenia [Unknown]
  - Klebsiella sepsis [Unknown]
  - Death [Fatal]
  - Renal impairment [Recovering/Resolving]
